FAERS Safety Report 6194961-0 (Version None)
Quarter: 2009Q2

REPORT INFORMATION
  Report Type: 
  Country: None (occurrence: None)
  Receive Date: 20090515
  Receipt Date: 20090515
  Transmission Date: 20091009
  Serious: No
  Sender: FDA-Public Use
  Company Number: None

PATIENT
  Age: 60 Year
  Sex: Female
  Weight: 52.1637 kg

DRUGS (1)
  1. LEVAQUIN [Suspect]
     Indication: SEPSIS
     Dosage: IV DRIP
     Route: 041
     Dates: start: 20090425, end: 20090425

REACTIONS (5)
  - ACTIVITIES OF DAILY LIVING IMPAIRED [None]
  - IMPAIRED WORK ABILITY [None]
  - INFUSION SITE PAIN [None]
  - INFUSION SITE SWELLING [None]
  - PYREXIA [None]
